FAERS Safety Report 18217878 (Version 1)
Quarter: 2020Q3

REPORT INFORMATION
  Report Type: Spontaneous
  Country: TR (occurrence: TR)
  Receive Date: 20200901
  Receipt Date: 20200901
  Transmission Date: 20201103
  Serious: Yes (Hospitalization)
  Sender: FDA-Public Use
  Company Number: NVSC2020TR238609

PATIENT
  Age: 50 Year
  Sex: Female

DRUGS (2)
  1. KOLESTRAN TOZ [Suspect]
     Active Substance: CHOLESTYRAMINE
     Indication: BILE ACID MALABSORPTION
     Dosage: 1 DF, QID (BEFORE BREAKFAST, AFTER BREAKFAST, AFTERNOON AND EVENNING)
     Route: 065
  2. LOMOTIL [Concomitant]
     Active Substance: ATROPINE SULFATE\DIPHENOXYLATE HYDROCHLORIDE
     Indication: DIARRHOEA
     Dosage: 4 DF, QD (BEFORE BREAKFAST, AFTER BREAKFAST, AFTERNOON AND EVENNING)
     Route: 065

REACTIONS (1)
  - Intestinal obstruction [Recovered/Resolved]
